FAERS Safety Report 12751652 (Version 1)
Quarter: 2016Q3

REPORT INFORMATION
  Report Type: Spontaneous
  Country: US (occurrence: US)
  Receive Date: 20160916
  Receipt Date: 20160916
  Transmission Date: 20161109
  Serious: Yes (Other)
  Sender: FDA-Public Use
  Company Number: None

PATIENT

DRUGS (2)
  1. SHOWER TO SHOWER TALCUM POWDER [Suspect]
     Active Substance: TALC
     Indication: PERINEAL DISORDER
     Route: 061
     Dates: start: 1980, end: 2013
  2. JOHNSONS BABY POWDER [Suspect]
     Active Substance: TALC
     Indication: PERINEAL DISORDER
     Route: 061
     Dates: start: 1980, end: 2013

REACTIONS (1)
  - Ovarian cancer [None]

NARRATIVE: CASE EVENT DATE: 201404
